FAERS Safety Report 5843839-8 (Version None)
Quarter: 2008Q3

REPORT INFORMATION
  Report Type: 
  Country: None (occurrence: None)
  Receive Date: 20080813
  Receipt Date: 20080805
  Transmission Date: 20090109
  Serious: Yes (Hospitalization, Other)
  Sender: FDA-Public Use
  Company Number: PHEH2006US06975

PATIENT
  Sex: Female
  Weight: 63.492 kg

DRUGS (12)
  1. AREDIA [Suspect]
     Indication: METASTASES TO BONE
     Dosage: 90 MG, QMO
     Route: 042
     Dates: start: 19991122, end: 20020301
  2. ZOMETA [Suspect]
     Indication: METASTASES TO BONE
     Dosage: UNK
     Dates: start: 20020301, end: 20041101
  3. ADRIAMYCIN PFS [Concomitant]
     Indication: BREAST CANCER METASTATIC
     Dates: start: 19990101
  4. RADIATION THERAPY [Concomitant]
     Dosage: 3500 CGY
     Dates: start: 19990624
  5. TAMOXIFEN CITRATE [Concomitant]
     Indication: BREAST CANCER
  6. XELODA [Concomitant]
     Indication: BREAST CANCER METASTATIC
  7. ANTINEOPLASTIC AGENTS [Concomitant]
  8. ARANESP [Concomitant]
     Dosage: UNK, QW3
  9. AVALIDE [Concomitant]
     Dosage: UNK, UNK
  10. FOSAMAX [Concomitant]
     Dosage: UNK, UNK
  11. PERIDEX [Suspect]
     Dosage: UNK, UNK
     Dates: start: 20050224
  12. DECADRON                                /CAN/ [Concomitant]

REACTIONS (49)
  - ABSCESS DRAINAGE [None]
  - BACTERIA TISSUE SPECIMEN IDENTIFIED [None]
  - BIOPSY BONE [None]
  - BONE DEBRIDEMENT [None]
  - BONE DENSITY DECREASED [None]
  - BONE DEVELOPMENT ABNORMAL [None]
  - BONE DISORDER [None]
  - BONE FRAGMENTATION [None]
  - BONE TRIMMING [None]
  - COMPUTERISED TOMOGRAM ABNORMAL [None]
  - CRANIAL NERVE DISORDER [None]
  - CYST [None]
  - DENTAL TREATMENT [None]
  - DYSPHAGIA [None]
  - EAR PAIN [None]
  - EMOTIONAL DISORDER [None]
  - ERYTHEMA [None]
  - EUSTACHIAN TUBE DYSFUNCTION [None]
  - EXCESSIVE GRANULATION TISSUE [None]
  - FOREIGN BODY TRAUMA [None]
  - GINGIVAL INFECTION [None]
  - HYPERBARIC OXYGEN THERAPY [None]
  - HYPOAESTHESIA ORAL [None]
  - IMPAIRED HEALING [None]
  - INFLAMMATION [None]
  - INJURY [None]
  - JAW DISORDER [None]
  - LOOSE TOOTH [None]
  - LYMPHADENOPATHY [None]
  - MACROGLOSSIA [None]
  - MASS [None]
  - MOUTH HAEMORRHAGE [None]
  - MUCOSAL EROSION [None]
  - NASAL MUCOSAL DISORDER [None]
  - NODULE [None]
  - ORAL DISCOMFORT [None]
  - ORAL INFECTION [None]
  - OSTEOMYELITIS CHRONIC [None]
  - OSTEONECROSIS [None]
  - PAIN [None]
  - PROSTHESIS IMPLANTATION [None]
  - RETCHING [None]
  - SINUS DISORDER [None]
  - TONGUE PARALYSIS [None]
  - TOOTH DISORDER [None]
  - TOOTH EXTRACTION [None]
  - TOOTH RESORPTION [None]
  - URINARY TRACT INFECTION [None]
  - WOUND DEHISCENCE [None]
